FAERS Safety Report 6651769-7 (Version None)
Quarter: 2010Q1

REPORT INFORMATION
  Report Type: 
  Country: None (occurrence: None)
  Receive Date: 20100322
  Receipt Date: 20100312
  Transmission Date: 20100710
  Serious: Yes (Hospitalization)
  Sender: FDA-Public Use
  Company Number: 2010SP015550

PATIENT
  Sex: Female
  Weight: 90 kg

DRUGS (2)
  1. DIPROPHOS (BETAMETHASONE SODIUM PHOSPHATE/DIPROPIONATE /00582101/) [Suspect]
     Indication: DRUG USE FOR UNKNOWN INDICATION
     Dosage: 1 ML;PERIA
     Route: 052
     Dates: end: 20100128
  2. TRIMECAINUM 1% [Concomitant]

REACTIONS (6)
  - ARTHRALGIA [None]
  - ERYTHEMA [None]
  - JOINT RANGE OF MOTION DECREASED [None]
  - JOINT SWELLING [None]
  - PRODUCT QUALITY ISSUE [None]
  - SKIN WARM [None]
